FAERS Safety Report 9636220 (Version 1)
Quarter: 2013Q4

REPORT INFORMATION
  Report Type: Spontaneous
  Country: FR (occurrence: FR)
  Receive Date: 20131021
  Receipt Date: 20131021
  Transmission Date: 20140711
  Serious: Yes (Hospitalization)
  Sender: FDA-Public Use
  Company Number: FR-PFIZER INC-2013295651

PATIENT
  Age: 37 Year
  Sex: Male

DRUGS (9)
  1. DALACINE [Suspect]
     Dosage: UNK
     Route: 048
     Dates: start: 20121022, end: 20130725
  2. MALOCIDE [Suspect]
     Dosage: UNK
     Route: 048
     Dates: start: 20121022, end: 20130725
  3. RIVOTRIL [Suspect]
     Dosage: UNK
     Route: 048
     Dates: start: 201210, end: 20130725
  4. KIVEXA [Concomitant]
     Dosage: UNK
  5. NORVIR [Concomitant]
     Dosage: UNK
  6. REYATAZ [Concomitant]
     Dosage: UNK
  7. LYRICA [Concomitant]
     Dosage: UNK
  8. NEURONTIN [Concomitant]
     Dosage: UNK
  9. PENTACARINAT ^AVENTIS^ [Concomitant]
     Dosage: UNK

REACTIONS (2)
  - Anaemia [Recovered/Resolved]
  - Thrombocytopenia [Recovered/Resolved]
